FAERS Safety Report 4478622-1 (Version None)
Quarter: 2004Q4

REPORT INFORMATION
  Report Type: 
  Country: None (occurrence: None)
  Receive Date: 20041019
  Receipt Date: 20040715
  Transmission Date: 20050328
  Serious: Yes (Hospitalization)
  Sender: FDA-Public Use
  Company Number: 200412429JP

PATIENT
  Age: 66 Year
  Sex: Male
  Weight: 60 kg

DRUGS (17)
  1. LASIX [Suspect]
     Indication: CARDIAC FAILURE
     Route: 048
     Dates: start: 20021229, end: 20030204
  2. LASIX [Suspect]
     Indication: PROPHYLAXIS
     Route: 048
     Dates: start: 20021229, end: 20030204
  3. AMARYL [Suspect]
     Indication: DIABETES MELLITUS
     Route: 048
     Dates: start: 20030120, end: 20030204
  4. PANALDIN [Suspect]
     Indication: THROMBOSIS PROPHYLAXIS
     Route: 048
     Dates: start: 20021219, end: 20030204
  5. PARAMIDIN [Suspect]
     Dates: start: 20021226, end: 20030204
  6. BAYASPIRIN [Concomitant]
     Indication: THROMBOSIS PROPHYLAXIS
     Route: 048
     Dates: start: 20021219, end: 20030204
  7. GASTER [Concomitant]
     Indication: GASTRIC DISORDER
     Route: 048
     Dates: start: 20021219, end: 20030204
  8. GASTER [Concomitant]
     Indication: PROPHYLAXIS
     Route: 048
     Dates: start: 20021219, end: 20030204
  9. MAGNESIUM OXIDE [Concomitant]
     Indication: CONSTIPATION
     Route: 048
     Dates: start: 20021219, end: 20030204
  10. CARVEDILOL [Concomitant]
     Indication: CARDIAC FAILURE
     Route: 048
     Dates: start: 20021224, end: 20030204
  11. CARVEDILOL [Concomitant]
     Indication: PROPHYLAXIS
     Route: 048
     Dates: start: 20021224, end: 20030204
  12. RENIVACE [Concomitant]
     Indication: CARDIAC FAILURE
     Route: 048
     Dates: start: 20021226, end: 20030204
  13. RENIVACE [Concomitant]
     Indication: PROPHYLAXIS
     Route: 048
     Dates: start: 20021226, end: 20030204
  14. WARFARIN SODIUM [Concomitant]
     Indication: THROMBOSIS PROPHYLAXIS
     Route: 048
     Dates: start: 20021226, end: 20030204
  15. ALDACTONE-A [Concomitant]
     Indication: CARDIAC FAILURE
     Route: 048
     Dates: start: 20021229, end: 20030204
  16. FORSENID [Concomitant]
     Indication: CONSTIPATION
     Route: 048
     Dates: start: 20030105, end: 20030204
  17. PL GRAN. [Concomitant]
     Indication: NASOPHARYNGITIS
     Route: 048
     Dates: start: 20030125, end: 20030204

REACTIONS (6)
  - BILIARY DILATATION [None]
  - HAEMORRHAGIC DIATHESIS [None]
  - HEPATIC FUNCTION ABNORMAL [None]
  - HEPATIC NECROSIS [None]
  - HEPATITIS CHOLESTATIC [None]
  - LYMPHOCYTE STIMULATION TEST POSITIVE [None]
